FAERS Safety Report 20633302 (Version 3)
Quarter: 2023Q1

REPORT INFORMATION
  Report Type: Report from Study
  Country: ZA (occurrence: ZA)
  Receive Date: 20220324
  Receipt Date: 20230122
  Transmission Date: 20230418
  Serious: Yes (Hospitalization)
  Sender: FDA-Public Use
  Company Number: ZA-JNJFOC-20220331894

PATIENT
  Age: 45 Year
  Sex: Male
  Weight: 95.1 kg

DRUGS (14)
  1. ESKETAMINE [Suspect]
     Active Substance: ESKETAMINE
     Indication: Depression
     Dates: start: 20170920, end: 20220314
  2. ESKETAMINE [Suspect]
     Active Substance: ESKETAMINE
     Dates: end: 20220406
  3. ESKETAMINE [Suspect]
     Active Substance: ESKETAMINE
     Dosage: MEDICAL KIT NUMBER: 801133.
     Dates: start: 20221221
  4. GABAPENTIN [Concomitant]
     Active Substance: GABAPENTIN
     Indication: Headache
     Route: 048
     Dates: start: 20160630
  5. DORMONOCT [Concomitant]
     Active Substance: LOPRAZOLAM
     Indication: Insomnia
     Route: 048
     Dates: start: 20160630
  6. RIVOTRIL [Concomitant]
     Active Substance: CLONAZEPAM
     Indication: Major depression
     Route: 048
     Dates: start: 20160630
  7. RIVOTRIL [Concomitant]
     Active Substance: CLONAZEPAM
     Indication: Depression
  8. ATIVAN [Concomitant]
     Active Substance: LORAZEPAM
     Indication: Major depression
     Route: 048
     Dates: start: 20160630
  9. ATIVAN [Concomitant]
     Active Substance: LORAZEPAM
     Indication: Depression
  10. COMPRAL [ACETYLSALICYLIC ACID;CAFFEINE;PARACETAMOL] [Concomitant]
     Indication: Headache
     Route: 048
     Dates: start: 20170501
  11. DULOXETINE HYDROCHLORIDE [Concomitant]
     Active Substance: DULOXETINE HYDROCHLORIDE
     Indication: Major depression
     Route: 048
     Dates: start: 20180127
  12. DULOXETINE HYDROCHLORIDE [Concomitant]
     Active Substance: DULOXETINE HYDROCHLORIDE
     Indication: Depression
  13. ARCOXIA [Concomitant]
     Active Substance: ETORICOXIB
     Indication: Arthralgia
     Route: 048
     Dates: start: 20171025
  14. INDAPAMIDE\PERINDOPRIL [Concomitant]
     Active Substance: INDAPAMIDE\PERINDOPRIL
     Indication: Hypertension
     Route: 048
     Dates: start: 20190712

REACTIONS (1)
  - Meniscus injury [Recovered/Resolved]

NARRATIVE: CASE EVENT DATE: 20220315
